FAERS Safety Report 8553013-2 (Version None)
Quarter: 2012Q3

REPORT INFORMATION
  Report Type: 
  Country: None (occurrence: None)
  Receive Date: 20120731
  Receipt Date: 20101004
  Transmission Date: 20120928
  Serious: Yes (Hospitalization, Other)
  Sender: FDA-Public Use
  Company Number: US-BAYER-201023127NA

PATIENT
  Age: 29 Year
  Sex: Female
  Weight: 69 kg

DRUGS (10)
  1. ALBUTEROL [Concomitant]
     Indication: ASTHMA
     Route: 055
  2. PROZAC [Concomitant]
     Dates: start: 20080101
  3. ACIPHEX [Concomitant]
  4. PROZAC [Concomitant]
     Indication: ANTIDEPRESSANT THERAPY
     Dates: start: 20060101, end: 20070101
  5. PROZAC [Concomitant]
     Dates: start: 20080101
  6. ORTHO TRI-CYCLEN [Concomitant]
     Indication: CONTRACEPTION
     Dates: start: 20020101, end: 20050615
  7. YASMIN [Suspect]
     Indication: CONTRACEPTION
     Dates: start: 20050101, end: 20050201
  8. YASMIN [Suspect]
     Dates: start: 20060301, end: 20070501
  9. ALLEGRA [Concomitant]
  10. ACETAMINOPHEN [Concomitant]

REACTIONS (8)
  - BACK PAIN [None]
  - BILIARY DYSKINESIA [None]
  - CARDIAC MURMUR [None]
  - ARRHYTHMIA [None]
  - PAIN [None]
  - CHOLECYSTECTOMY [None]
  - CHOLECYSTITIS CHRONIC [None]
  - EATING DISORDER [None]
